FAERS Safety Report 14482103 (Version 1)
Quarter: 2018Q1

REPORT INFORMATION
  Report Type: Report from Study
  Country: US (occurrence: US)
  Receive Date: 20180202
  Receipt Date: 20180202
  Transmission Date: 20180509
  Serious: Yes (Hospitalization, Other)
  Sender: FDA-Public Use
  Company Number: US-SA-2018SA019660

PATIENT
  Age: 62 Year
  Sex: Male
  Weight: 90.71 kg

DRUGS (3)
  1. PLAVIX [Suspect]
     Active Substance: CLOPIDOGREL BISULFATE
     Route: 065
  2. LOVENOX [Suspect]
     Active Substance: ENOXAPARIN SODIUM
     Dosage: ROUTE: INTRA-PERITONEAL
  3. XARELTO [Suspect]
     Active Substance: RIVAROXABAN
     Indication: CEREBROVASCULAR ACCIDENT
     Route: 048
     Dates: end: 2016

REACTIONS (6)
  - Thrombosis [Not Recovered/Not Resolved]
  - Arterial thrombosis [Unknown]
  - Medication error [Unknown]
  - Stent placement [Unknown]
  - Aortic thrombosis [Unknown]
  - Surgery [Unknown]
